FAERS Safety Report 4549942-7 (Version None)
Quarter: 2005Q1

REPORT INFORMATION
  Report Type: 
  Country: None (occurrence: None)
  Receive Date: 20050112
  Receipt Date: 20050106
  Transmission Date: 20050727
  Serious: Yes (Hospitalization)
  Sender: FDA-Public Use
  Company Number: PHBS2005NZ00543

PATIENT
  Age: 43 Year
  Sex: Male

DRUGS (9)
  1. LEPONEX [Suspect]
     Indication: SCHIZOPHRENIA
     Dosage: 300 MG/D
     Route: 048
     Dates: start: 19970101, end: 20040901
  2. LEPONEX [Suspect]
     Dosage: 325 MG/D
     Route: 048
     Dates: start: 20041001, end: 20041125
  3. LEPONEX [Suspect]
     Dosage: 350 MG/D
     Route: 048
     Dates: start: 20041126, end: 20041128
  4. LEPONEX [Suspect]
     Dosage: 375 MG/D
     Route: 048
     Dates: start: 20041129, end: 20041130
  5. LEPONEX [Suspect]
     Dosage: 400 MG/D
     Route: 048
     Dates: start: 20041201
  6. MARIJUANA [Suspect]
     Route: 065
  7. OMEPRAZOLE [Concomitant]
     Dosage: 20 MG/D
     Route: 065
  8. PREDNISOLONE [Concomitant]
     Indication: LIVER DISORDER
     Dosage: 5 MG/D
     Route: 065
  9. CLONAZEPAM [Interacting]
     Route: 065

REACTIONS (4)
  - ANXIETY [None]
  - DRUG ABUSER [None]
  - DRUG LEVEL DECREASED [None]
  - SOCIAL PROBLEM [None]
